FAERS Safety Report 5978239-3 (Version None)
Quarter: 2008Q4

REPORT INFORMATION
  Report Type: 
  Country: None (occurrence: None)
  Receive Date: 20081126
  Receipt Date: 20081114
  Transmission Date: 20090506
  Serious: Yes (Hospitalization, Other)
  Sender: FDA-Public Use
  Company Number: KV200800266

PATIENT
  Age: 44 Year
  Sex: Male

DRUGS (11)
  1. ISOSORBIDE MONONITRATE [Suspect]
     Indication: HYPERTENSION
     Dosage: 60 MG, QD, ORAL
     Route: 048
     Dates: start: 20060101
  2. CYMBALTA [Concomitant]
  3. DIOVAN [Concomitant]
  4. SIMVASTATIN [Concomitant]
  5. HYDROCODONE (HYDROCODONE) [Concomitant]
  6. NEXIUM [Concomitant]
  7. SKELAXIN [Concomitant]
  8. CARBATROL [Concomitant]
  9. FUROSEMIDE [Concomitant]
  10. KLONOPIN [Concomitant]
  11. IBUPROFEN [Concomitant]

REACTIONS (4)
  - BACK PAIN [None]
  - CHEST DISCOMFORT [None]
  - FATIGUE [None]
  - HYPERTENSION [None]
